FAERS Safety Report 16872779 (Version 1)
Quarter: 2019Q4

REPORT INFORMATION
  Report Type: Spontaneous
  Country: IT (occurrence: IT)
  Receive Date: 20191001
  Receipt Date: 20191001
  Transmission Date: 20200122
  Serious: Yes (Other)
  Sender: FDA-Public Use
  Company Number: IT-PFIZER INC-2019418111

PATIENT
  Age: 61 Year
  Sex: Female

DRUGS (1)
  1. SUTENT [Suspect]
     Active Substance: SUNITINIB MALATE
     Indication: LUNG NEOPLASM
     Dosage: 37.5 MG, 1X/DAY

REACTIONS (15)
  - Weight decreased [Unknown]
  - Vomiting [Unknown]
  - Chest pain [Unknown]
  - Peripheral swelling [Unknown]
  - Apnoea [Unknown]
  - Nausea [Unknown]
  - Dysgeusia [Unknown]
  - Decreased appetite [Unknown]
  - Pain in extremity [Unknown]
  - Product use in unapproved indication [Unknown]
  - Tremor [Unknown]
  - Asthenia [Unknown]
  - Parosmia [Unknown]
  - Confusional state [Unknown]
  - Off label use [Unknown]
